FAERS Safety Report 10924286 (Version 1)
Quarter: 2015Q1

REPORT INFORMATION
  Report Type: Spontaneous
  Country: US (occurrence: None)
  Receive Date: 20150316
  Receipt Date: 20150316
  Transmission Date: 20150721
  Serious: No
  Sender: FDA-Public Use
  Company Number: None

PATIENT
  Age: 28 Year
  Sex: Female

DRUGS (1)
  1. REBIF REBIDOSE [Suspect]
     Active Substance: INTERFERON BETA-1A
     Indication: MULTIPLE SCLEROSIS
     Dosage: INJECT THE CONTENTS OF 1 PRE
     Route: 058
     Dates: start: 20150213, end: 20150306

REACTIONS (2)
  - Renal cyst [None]
  - Drug dose omission [None]

NARRATIVE: CASE EVENT DATE: 20150306
